FAERS Safety Report 9290255 (Version 1)
Quarter: 2013Q2

REPORT INFORMATION
  Report Type: Spontaneous
  Country: AR (occurrence: AR)
  Receive Date: 20130515
  Receipt Date: 20130515
  Transmission Date: 20140414
  Serious: Yes (Other)
  Sender: FDA-Public Use
  Company Number: AR-JNJFOC-20130503061

PATIENT
  Age: 52 Year
  Sex: Female
  Weight: 62 kg

DRUGS (4)
  1. TOPAMAC [Suspect]
     Indication: EMOTIONAL DISORDER
     Route: 048
  2. TOPAMAC [Suspect]
     Indication: EMOTIONAL DISORDER
     Route: 048
  3. TEGRETOL [Concomitant]
     Dosage: SINCE 20 YEARS AGO
     Route: 048
  4. CLONAPIN [Concomitant]
     Dosage: SINCE 2012
     Route: 048
     Dates: start: 2012

REACTIONS (2)
  - Emotional disorder [Not Recovered/Not Resolved]
  - Off label use [Not Recovered/Not Resolved]
